FAERS Safety Report 9003518 (Version 2)
Quarter: 2013Q1

REPORT INFORMATION
  Report Type: Spontaneous
  Country: US (occurrence: US)
  Receive Date: 20130108
  Receipt Date: 20130109
  Transmission Date: 20140127
  Serious: No
  Sender: FDA-Public Use
  Company Number: US-BAYER-2013-000041

PATIENT
  Sex: Female

DRUGS (1)
  1. MIRENA [Suspect]
     Dosage: 20 MCG/24HR, CONT
     Route: 015
     Dates: end: 2012

REACTIONS (7)
  - Weight increased [Recovered/Resolved]
  - Abdominal distension [Recovered/Resolved]
  - Headache [Recovered/Resolved]
  - Loss of libido [Recovered/Resolved]
  - Anxiety disorder [Recovered/Resolved]
  - Mood swings [Recovered/Resolved]
  - Medical device discomfort [Recovered/Resolved]
